FAERS Safety Report 5580261-6 (Version None)
Quarter: 2008Q1

REPORT INFORMATION
  Report Type: 
  Country: None (occurrence: None)
  Receive Date: 20080103
  Receipt Date: 20071227
  Transmission Date: 20080703
  Serious: Yes (Hospitalization, Congenital Anomaly)
  Sender: FDA-Public Use
  Company Number: A0678476A

PATIENT
  Sex: Male
  Weight: 7.3 kg

DRUGS (2)
  1. PAXIL [Suspect]
     Indication: ANXIETY DISORDER
     Dosage: 20MG PER DAY
     Dates: start: 20031006, end: 20040101
  2. PRENATAL VITAMINS [Concomitant]

REACTIONS (58)
  - ALPHA HAEMOLYTIC STREPTOCOCCAL INFECTION [None]
  - ANAEMIA [None]
  - AORTIC STENOSIS [None]
  - ARTERIOVENOUS MALFORMATION [None]
  - ATELECTASIS [None]
  - ATRIAL SEPTAL DEFECT [None]
  - BACTERAEMIA [None]
  - BLOOD CREATININE INCREASED [None]
  - BRADYCARDIA [None]
  - BRONCHIAL HYPERREACTIVITY [None]
  - BRONCHIOLITIS [None]
  - CARDIAC FAILURE CONGESTIVE [None]
  - CARDIAC MURMUR [None]
  - CARDIAC TAMPONADE [None]
  - COARCTATION OF THE AORTA [None]
  - CONGENITAL AORTIC ATRESIA [None]
  - CONGENITAL PULMONARY ARTERY ANOMALY [None]
  - CYANOSIS [None]
  - DEEP VEIN THROMBOSIS [None]
  - DEHYDRATION [None]
  - DIAPHRAGMATIC PARALYSIS [None]
  - DILATATION ATRIAL [None]
  - DRUG EXPOSURE DURING PREGNANCY [None]
  - DYSPNOEA [None]
  - EATING DISORDER [None]
  - ELECTROLYTE IMBALANCE [None]
  - FAILURE TO THRIVE [None]
  - FEEDING DISORDER OF INFANCY OR EARLY CHILDHOOD [None]
  - FOETAL HEART RATE DECELERATION [None]
  - FOOD AVERSION [None]
  - HEART DISEASE CONGENITAL [None]
  - HYDRONEPHROSIS [None]
  - HYPERHIDROSIS [None]
  - HYPOKALAEMIA [None]
  - HYPOPLASTIC LEFT HEART SYNDROME [None]
  - HYPOTENSION [None]
  - HYPOXIA [None]
  - INGUINAL HERNIA [None]
  - INTESTINAL FUNCTIONAL DISORDER [None]
  - KIDNEY MALFORMATION [None]
  - MITRAL VALVE DISEASE [None]
  - OEDEMA [None]
  - OEDEMA PERIPHERAL [None]
  - PATENT DUCTUS ARTERIOSUS [None]
  - PERSISTENT FOETAL CIRCULATION [None]
  - PLEURAL EFFUSION [None]
  - PULMONARY ARTERY STENOSIS [None]
  - QRS AXIS ABNORMAL [None]
  - RENAL FAILURE [None]
  - RESPIRATORY DISTRESS [None]
  - RESPIRATORY FAILURE [None]
  - RIGHT VENTRICULAR HYPERTROPHY [None]
  - SINUS TACHYCARDIA [None]
  - TACHYPNOEA [None]
  - TRICUSPID VALVE INCOMPETENCE [None]
  - VESICOURETERIC REFLUX [None]
  - VOMITING [None]
  - WEIGHT DECREASED [None]
